FAERS Safety Report 7878572-4 (Version None)
Quarter: 2011Q4

REPORT INFORMATION
  Report Type: 
  Country: None (occurrence: None)
  Receive Date: 20111014
  Receipt Date: 20110804
  Transmission Date: 20120403
  Serious: Yes (Death)
  Sender: FDA-Public Use
  Company Number: 1000022739

PATIENT
  Age: 44 Year
  Sex: Male

DRUGS (1)
  1. LEXAPRO [Suspect]
     Dosage: 10 MG (10 MG, 1 IN 1 D)
     Dates: start: 20100623, end: 20100808

REACTIONS (4)
  - ANXIETY [None]
  - AGITATION [None]
  - COMPLETED SUICIDE [None]
  - SUICIDAL IDEATION [None]
